FAERS Safety Report 15794975 (Version 1)
Quarter: 2019Q1

REPORT INFORMATION
  Report Type: Spontaneous
  Country: CA (occurrence: CA)
  Receive Date: 20190107
  Receipt Date: 20190107
  Transmission Date: 20190417
  Serious: Yes (Hospitalization, Other)
  Sender: FDA-Public Use
  Company Number: CA-BAYER-2019-001193

PATIENT
  Age: 62 Year
  Sex: Male

DRUGS (3)
  1. CLAVULIN [AMOXICILLIN SODIUM;CLAVULANATE POTASSIUM] [Concomitant]
     Active Substance: AMOXICILLIN\CLAVULANATE POTASSIUM
     Indication: URETHRITIS
     Dosage: UNK
     Dates: start: 201810, end: 2018
  2. CIPRO [Suspect]
     Active Substance: CIPROFLOXACIN HYDROCHLORIDE
     Indication: URETHRITIS
     Dosage: UNK
     Dates: start: 201810, end: 2018
  3. ZOLADEX [Suspect]
     Active Substance: GOSERELIN ACETATE
     Indication: PROSTATE CANCER
     Dosage: UNK
     Dates: start: 20170323

REACTIONS (5)
  - Prostatic specific antigen increased [Recovered/Resolved]
  - Diverticulitis [Unknown]
  - Metastases to bone [Unknown]
  - Tinnitus [Recovering/Resolving]
  - Sleep apnoea syndrome [Unknown]

NARRATIVE: CASE EVENT DATE: 201810
